FAERS Safety Report 7257023 (Version 6)
Quarter: 2013Q4

REPORT INFORMATION
  Report Type: Report from Study
  Country: BR (occurrence: BR)
  Receive Date: 20100126
  Receipt Date: 20131125
  Transmission Date: 20140711
  Serious: Yes (Death, Hospitalization, Other)
  Sender: FDA-Public Use
  Company Number: PHHY2010BR03465

PATIENT
  Sex: Male

DRUGS (3)
  1. DIOVAN [Suspect]
     Indication: BLOOD PRESSURE ABNORMAL
     Dosage: 1 DF (80 MG), DAILY
     Route: 048
  2. DRUG USED IN DIABETES [Concomitant]
  3. INSULIN [Concomitant]
     Dosage: UNK UKN, UNK

REACTIONS (11)
  - Prostate cancer [Fatal]
  - Prostatic pain [Fatal]
  - Thrombosis [Fatal]
  - Pleural effusion [Fatal]
  - Pulmonary embolism [Fatal]
  - Metastasis [Fatal]
  - Bladder cancer [Fatal]
  - Blood urine [Fatal]
  - Renal disorder [Fatal]
  - Dysstasia [Unknown]
  - Somnolence [Unknown]
